FAERS Safety Report 8538779-X (Version None)
Quarter: 2012Q3

REPORT INFORMATION
  Report Type: 
  Country: None (occurrence: None)
  Receive Date: 20120726
  Receipt Date: 20120717
  Transmission Date: 20120928
  Serious: Yes (Life-Threatening, Other)
  Sender: FDA-Public Use
  Company Number: RO-VERTEX PHARMACEUTICALS INC.-000000000000001092

PATIENT
  Sex: Female
  Weight: 58 kg

DRUGS (3)
  1. INCIVO [Suspect]
     Indication: HEPATITIS C
     Dosage: DOSAGE FORM: TABLET
     Route: 048
     Dates: start: 20120412, end: 20120623
  2. PEGINTERFERON ALFA-2A [Concomitant]
     Indication: HEPATITIS C
     Dosage: DOSAGE FORM: CAPSULE
     Route: 058
     Dates: start: 20120412
  3. RIBAVIRIN [Concomitant]
     Indication: HEPATITIS C
     Dosage: DOSAGE FORM: TABLET, 400MG + 600MG PER DAY
     Route: 048
     Dates: start: 20120412

REACTIONS (1)
  - NEUTROPENIA [None]
